FAERS Safety Report 9876263 (Version 2)
Quarter: 2014Q1

REPORT INFORMATION
  Report Type: Other
  Country: US (occurrence: US)
  Receive Date: 20140206
  Receipt Date: 20140206
  Transmission Date: 20141002
  Serious: No
  Sender: FDA-Public Use
  Company Number: US-ACORDA-ACO_35627_2013

PATIENT
  Sex: Female
  Weight: 66.67 kg

DRUGS (10)
  1. AMPYRA [Suspect]
     Indication: PERONEAL NERVE PALSY
     Dosage: 10 MG, BID
     Route: 048
     Dates: start: 2010, end: 2013
  2. AMPYRA [Suspect]
     Indication: GAIT DISTURBANCE
     Dosage: 10 UNK, UNK
     Route: 048
     Dates: start: 2013
  3. EVISTA [Concomitant]
     Indication: PRODUCT USED FOR UNKNOWN INDICATION
     Dosage: 60 MG TAB, UNK
     Route: 065
  4. EFFEXOR [Concomitant]
     Indication: PRODUCT USED FOR UNKNOWN INDICATION
     Dosage: 100 MG, UNK
     Route: 065
  5. COPAXONE [Concomitant]
     Indication: PRODUCT USED FOR UNKNOWN INDICATION
     Dosage: 20 MG/ML, UNK
     Route: 065
  6. VITAMIN B12 [Concomitant]
     Indication: PRODUCT USED FOR UNKNOWN INDICATION
     Dosage: 1000 UNK, UNK
     Route: 065
  7. ACIDOPHILUS [Concomitant]
     Indication: PRODUCT USED FOR UNKNOWN INDICATION
     Route: 065
  8. FISH OIL [Concomitant]
     Indication: PRODUCT USED FOR UNKNOWN INDICATION
     Route: 065
  9. VITAMIN D [Concomitant]
     Indication: PRODUCT USED FOR UNKNOWN INDICATION
     Dosage: 1000 IU, UNK
     Route: 065
  10. TIZANIDINE HYDROCHLORIDE [Concomitant]
     Indication: PRODUCT USED FOR UNKNOWN INDICATION
     Dosage: 2 MG, UNK
     Route: 065

REACTIONS (1)
  - Gastroenteritis viral [Recovered/Resolved]
